FAERS Safety Report 26156632 (Version 1)
Quarter: 2025Q4

REPORT INFORMATION
  Report Type: Report from Study
  Country: CA (occurrence: CA)
  Receive Date: 20251215
  Receipt Date: 20251215
  Transmission Date: 20260118
  Serious: Yes (Death, Hospitalization, Other)
  Sender: GLAXOSMITHKLINE
  Company Number: CA-GLAXOSMITHKLINE INC-CA2025089090

PATIENT
  Age: 84 Year
  Sex: Male

DRUGS (1)
  1. MEPOLIZUMAB [Suspect]
     Active Substance: MEPOLIZUMAB
     Indication: Asthma
     Dosage: 100 MG, Q4W

REACTIONS (5)
  - Death [Fatal]
  - Pneumothorax [Not Recovered/Not Resolved]
  - Myalgia [Not Recovered/Not Resolved]
  - Mobility decreased [Unknown]
  - Oedema [Unknown]

NARRATIVE: CASE EVENT DATE: 20250601
